FAERS Safety Report 9118906 (Version 1)
Quarter: 2013Q1

REPORT INFORMATION
  Report Type: Spontaneous
  Country: US (occurrence: None)
  Receive Date: 20130221
  Receipt Date: 20130221
  Transmission Date: 20140127
  Serious: Yes (Hospitalization, Other)
  Sender: FDA-Public Use
  Company Number: None

PATIENT
  Age: 62 Year
  Sex: Female
  Weight: 76.66 kg

DRUGS (2)
  1. AMOXICILLIN [Suspect]
     Indication: EAR INFECTION
     Dosage: JAN. 28TH-FEB. 3 TWICE A DAY-7 DAYS
     Route: 048
  2. AMOXICILLIN [Suspect]

REACTIONS (2)
  - Pruritus [None]
  - Rash [None]
